FAERS Safety Report 15505097 (Version 1)
Quarter: 2018Q4

REPORT INFORMATION
  Report Type: Spontaneous
  Country: US (occurrence: US)
  Receive Date: 20181010
  Receipt Date: 20181010
  Transmission Date: 20190205
  Serious: Yes (Disabling)
  Sender: FDA-Public Use
  Company Number: None

PATIENT
  Age: 64 Year
  Sex: Female
  Weight: 69.75 kg

DRUGS (12)
  1. CVS HEALTH SINUS RELIEF [Suspect]
     Active Substance: OXYMETAZOLINE HYDROCHLORIDE
     Indication: RHINITIS
     Dosage: ?          QUANTITY:2 SPRAY(S);OTHER ROUTE:NASAL SALINE SPRAY?
     Dates: start: 20180801, end: 20180915
  2. XIFAXAN [Concomitant]
     Active Substance: RIFAXIMIN
  3. FLORASTOR [Concomitant]
     Active Substance: SACCHAROMYCES CEREVISIAE
  4. VSL #3 [Concomitant]
  5. VITAMIN C [Concomitant]
     Active Substance: ASCORBIC ACID
  6. LISINOPRIL. [Concomitant]
     Active Substance: LISINOPRIL
  7. DELZICOL [Concomitant]
     Active Substance: MESALAMINE
  8. RESTASIS [Concomitant]
     Active Substance: CYCLOSPORINE
  9. CRANBERRY SUPPLEMENTS [Concomitant]
  10. MULTI-VITAMIN [Concomitant]
     Active Substance: .ALPHA.-TOCOPHEROL ACETATE, DL-\ASCORBIC ACID\CYANOCOBALAMIN\FLUORIDE ION\FOLIC ACID\NIACIN\PYRIDOXINE\RIBOFLAVIN\THIAMINE\VITAMIN A\VITAMIN D
  11. CALCIUM/VITAMIN D SUPPLEMENT [Concomitant]
  12. VAGIFEM [Concomitant]
     Active Substance: ESTRADIOL

REACTIONS (8)
  - Pyrexia [None]
  - Recalled product administered [None]
  - Blood immunoglobulin G decreased [None]
  - Upper-airway cough syndrome [None]
  - Diarrhoea [None]
  - Gastrointestinal pain [None]
  - Abdominal distension [None]
  - Gastrointestinal bacterial infection [None]

NARRATIVE: CASE EVENT DATE: 20180924
